FAERS Safety Report 18302859 (Version 1)
Quarter: 2020Q3

REPORT INFORMATION
  Report Type: Spontaneous
  Country: TW (occurrence: TW)
  Receive Date: 20200924
  Receipt Date: 20200924
  Transmission Date: 20201103
  Serious: Yes (Other)
  Sender: FDA-Public Use
  Company Number: TW-SUN PHARMACEUTICAL INDUSTRIES LTD-2020R1-261514

PATIENT
  Age: 9 Year
  Sex: Female

DRUGS (6)
  1. PREDNISOLONE. [Suspect]
     Active Substance: PREDNISOLONE
     Dosage: UNK (TAPERED OFF)
     Route: 048
  2. HYDROXYCHLOROQUINE [Suspect]
     Active Substance: HYDROXYCHLOROQUINE
     Indication: SKIN LESION
     Dosage: 6 MILLIGRAM/KILOGRAM, DAILY
     Route: 048
  3. CALCIPOTRIOL/BETAMETHASONE DIPROPIONATE [Suspect]
     Active Substance: BETAMETHASONE DIPROPIONATE\CALCIPOTRIENE
     Indication: SKIN LESION
     Dosage: UNK (50 MICROG CALCIPOTRIOL (AS HYDRATE)/0.5 MG BETAMETHASONE HYDRATE)
     Route: 061
  4. PREDNISOLONE. [Suspect]
     Active Substance: PREDNISOLONE
     Indication: SKIN LESION
     Dosage: 1 MILLIGRAM/KILOGRAM, DAILY
     Route: 048
  5. PREDNISOLONE. [Suspect]
     Active Substance: PREDNISOLONE
     Dosage: 40 MILLIGRAM, DAILY
     Route: 048
  6. ADAPALENE. [Suspect]
     Active Substance: ADAPALENE
     Indication: SKIN LESION
     Dosage: UNK
     Route: 061

REACTIONS (1)
  - Disease progression [Recovering/Resolving]
